FAERS Safety Report 6154747-X (Version None)
Quarter: 2009Q2

REPORT INFORMATION
  Report Type: 
  Country: None (occurrence: None)
  Receive Date: 20090414
  Receipt Date: 20090403
  Transmission Date: 20091009
  Serious: Yes (Other)
  Sender: FDA-Public Use
  Company Number: ES-ABBOTT-09P-144-0566354-00

PATIENT
  Age: 50 Year
  Sex: Male

DRUGS (6)
  1. DEPAKENE [Suspect]
     Indication: DYSPLASIA
     Route: 048
     Dates: start: 19980101, end: 20080101
  2. DEPAKENE [Suspect]
     Route: 048
     Dates: start: 20080101, end: 20080801
  3. DEPAKENE [Suspect]
  4. CALCIUM [Concomitant]
     Indication: OSTEOPENIA
  5. VITAMIN D [Concomitant]
     Indication: OSTEOPENIA
  6. RISEDRONIC ACID [Concomitant]
     Indication: OSTEOPENIA

REACTIONS (3)
  - BONE MARROW OEDEMA SYNDROME [None]
  - OSTEOPENIA [None]
  - OSTEOPOROTIC FRACTURE [None]
